FAERS Safety Report 18636240 (Version 1)
Quarter: 2020Q4

REPORT INFORMATION
  Report Type: Report from Study
  Country: US (occurrence: US)
  Receive Date: 20201218
  Receipt Date: 20201218
  Transmission Date: 20210114
  Serious: Yes (Other)
  Sender: FDA-Public Use
  Company Number: US-REGENERON PHARMACEUTICALS, INC.-2020-36104

PATIENT

DRUGS (1)
  1. EYLEA [Suspect]
     Active Substance: AFLIBERCEPT
     Indication: PRODUCT USED FOR UNKNOWN INDICATION
     Dosage: 2 MG/0.05ML SDV, RIGHT EYE, EVERY 4 WEEKS
     Route: 031

REACTIONS (5)
  - Lacrimation increased [Unknown]
  - Vitreous floaters [Unknown]
  - Retinal detachment [Unknown]
  - Adverse drug reaction [Unknown]
  - Eye discharge [Unknown]
